FAERS Safety Report 13404651 (Version 1)
Quarter: 2017Q2

REPORT INFORMATION
  Report Type: Spontaneous
  Country: US (occurrence: US)
  Receive Date: 20170405
  Receipt Date: 20170405
  Transmission Date: 20170830
  Serious: No
  Sender: FDA-Public Use
  Company Number: US-PERRIGO-17US001753

PATIENT
  Age: 1 Year
  Sex: Female
  Weight: 9.98 kg

DRUGS (2)
  1. BENADRYL [Concomitant]
     Active Substance: DIPHENHYDRAMINE HYDROCHLORIDE
     Indication: SEASONAL ALLERGY
     Dosage: UNK
     Route: 065
  2. ACETAMINOPHEN. [Suspect]
     Active Substance: ACETAMINOPHEN
     Indication: ACCIDENTAL EXPOSURE TO PRODUCT BY CHILD
     Dosage: POSSIBLY 1/2 TABLET TO 650 MG, SINGLE
     Route: 048
     Dates: start: 20170209, end: 20170209

REACTIONS (4)
  - Expired product administered [Recovered/Resolved]
  - Abdominal distension [Recovered/Resolved]
  - Accidental exposure to product by child [Recovered/Resolved]
  - Abdominal pain [Recovered/Resolved]

NARRATIVE: CASE EVENT DATE: 20170209
